FAERS Safety Report 5098354-9 (Version None)
Quarter: 2006Q3

REPORT INFORMATION
  Report Type: 
  Country: None (occurrence: None)
  Receive Date: 20060906
  Receipt Date: 20060831
  Transmission Date: 20061208
  Serious: Yes (Other)
  Sender: FDA-Public Use
  Company Number: US-JNJFOC-20060900698

PATIENT
  Age: 27 Year
  Sex: Male
  Weight: 72.58 kg

DRUGS (6)
  1. ULTRAM SR [Suspect]
     Route: 048
  2. ULTRAM SR [Suspect]
     Indication: INTERVERTEBRAL DISC PROTRUSION
     Route: 048
  3. LEXAPRO [Concomitant]
     Indication: ANXIETY
  4. LEXAPRO [Concomitant]
     Indication: DEPRESSION
  5. VOLTAREN [Concomitant]
     Indication: INTERVERTEBRAL DISC PROTRUSION
  6. NASONEX [Concomitant]

REACTIONS (5)
  - ANXIETY [None]
  - DEPRESSION [None]
  - DRUG WITHDRAWAL SYNDROME [None]
  - NIGHTMARE [None]
  - PANIC ATTACK [None]
